FAERS Safety Report 8564541-8 (Version None)
Quarter: 2012Q3

REPORT INFORMATION
  Report Type: 
  Country: None (occurrence: None)
  Receive Date: 20120803
  Receipt Date: 20120726
  Transmission Date: 20120928
  Serious: Yes (Other)
  Sender: FDA-Public Use
  Company Number: AT-B.I. PHARMACEUTICALS,INC./RIDGEFIELD-2012-AP-00617AP

PATIENT
  Age: 6 Month
  Sex: Female
  Weight: 6.9 kg

DRUGS (1)
  1. ATROVENT [Suspect]
     Indication: BRONCHITIS
     Dates: start: 20120702, end: 20120703

REACTIONS (2)
  - ERYTHEMA [None]
  - SWELLING [None]
